FAERS Safety Report 21948969 (Version 1)
Quarter: 2023Q1

REPORT INFORMATION
  Report Type: Spontaneous
  Country: DE (occurrence: DE)
  Receive Date: 20230203
  Receipt Date: 20230203
  Transmission Date: 20230417
  Serious: Yes (Hospitalization, Other)
  Sender: FDA-Public Use
  Company Number: DE-PROCTER+GAMBLE-PH23000396

PATIENT
  Age: 32 Year
  Sex: Male
  Weight: 80 kg

DRUGS (4)
  1. SERTRALINE [Suspect]
     Active Substance: SERTRALINE HYDROCHLORIDE
     Indication: Product used for unknown indication
     Dosage: 1 DOSAGE FORM (1 TABLET/S (MAINTENANCE MEDICATION), ORAL, LIKELY EXPOSURE)
     Route: 048
     Dates: start: 20230111
  2. BUSPIRONE HYDROCHLORIDE [Suspect]
     Active Substance: BUSPIRONE HYDROCHLORIDE
     Indication: Product used for unknown indication
     Dosage: 50 DOSAGE FORM (50 TABLET/S, ORAL, LIKELY EXPOSURE)
     Route: 048
     Dates: start: 20230111
  3. FLUMAZENIL [Suspect]
     Active Substance: FLUMAZENIL
     Indication: Product used for unknown indication
     Dosage: 3.5 GRAM (3.5 G (CONFUSED WITH FLUIMUCIL), INTRAVENOUS, LIKELY EXPOSURE)
     Route: 042
     Dates: start: 20230111
  4. ACETAMINOPHEN\DIPHENHYDRAMINE HYDROCHLORIDE\PSEUDOEPHEDRINE HYDROCHLOR [Suspect]
     Active Substance: ACETAMINOPHEN\DIPHENHYDRAMINE HYDROCHLORIDE\PSEUDOEPHEDRINE HYDROCHLORIDE
     Indication: Product used for unknown indication
     Dosage: 200 DOSAGE FORM (200 TABLET/S, ORAL, LIKELY EXPOSURE)
     Route: 048
     Dates: start: 20230111

REACTIONS (6)
  - Seizure [Unknown]
  - Tachycardia [Unknown]
  - Mydriasis [Unknown]
  - Intentional self-injury [Unknown]
  - Suicide attempt [Unknown]
  - Intentional overdose [Unknown]

NARRATIVE: CASE EVENT DATE: 20230111
